FAERS Safety Report 4273707-7 (Version None)
Quarter: 2004Q1

REPORT INFORMATION
  Report Type: 
  Country: None (occurrence: None)
  Receive Date: 20040119
  Receipt Date: 20031223
  Transmission Date: 20041129
  Serious: Yes (Other)
  Sender: FDA-Public Use
  Company Number: US-ROCHE-354787

PATIENT
  Age: 53 Year
  Sex: Male
  Weight: 95.1 kg

DRUGS (14)
  1. CAPECITABINE [Suspect]
     Dosage: FROM MONDAY TO FRIDAY.
     Route: 048
     Dates: start: 20031204
  2. CAPECITABINE [Suspect]
     Route: 048
  3. BEVACIZUMAB [Suspect]
     Route: 042
     Dates: start: 20031204
  4. BEVACIZUMAB [Suspect]
     Route: 042
  5. OXALIPLATIN [Suspect]
     Route: 042
     Dates: start: 20031204
  6. OXALIPLATIN [Suspect]
     Route: 042
  7. WELLBUTRIN [Concomitant]
  8. ZOCOR [Concomitant]
  9. COMPAZINE [Concomitant]
  10. TYLENOL [Concomitant]
  11. MAALOX [Concomitant]
  12. PRILOSEC [Concomitant]
  13. ZOFRAN [Concomitant]
  14. DARVOCET [Concomitant]

REACTIONS (2)
  - CATHETER SITE RELATED REACTION [None]
  - WOUND DEHISCENCE [None]
